FAERS Safety Report 9822551 (Version 1)
Quarter: 2014Q1

REPORT INFORMATION
  Report Type: Spontaneous
  Country: US (occurrence: US)
  Receive Date: 20140116
  Receipt Date: 20140116
  Transmission Date: 20141002
  Serious: Yes (Hospitalization)
  Sender: FDA-Public Use
  Company Number: US-BRISTOL-MYERS SQUIBB COMPANY-20016309

PATIENT
  Age: 65 Year
  Sex: Female
  Weight: 74 kg

DRUGS (7)
  1. YERVOY [Suspect]
     Indication: MALIGNANT MELANOMA STAGE III
     Dosage: ONGOING
     Dates: start: 20131223
  2. SYMBICORT [Concomitant]
  3. NOVOLOG [Concomitant]
  4. PRAVASTATIN SODIUM [Concomitant]
  5. LANTUS [Concomitant]
  6. LISINOPRIL [Concomitant]
  7. LYRICA [Concomitant]

REACTIONS (1)
  - Bronchitis [Unknown]
